FAERS Safety Report 6357832-2 (Version None)
Quarter: 2009Q3

REPORT INFORMATION
  Report Type: 
  Country: None (occurrence: None)
  Receive Date: 20090916
  Receipt Date: 20090914
  Transmission Date: 20100115
  Serious: Yes (Death)
  Sender: FDA-Public Use
  Company Number: PHEH2009US10857

PATIENT
  Sex: Male

DRUGS (3)
  1. SANDOSTATIN [Suspect]
  2. WARFARIN SODIUM [Concomitant]
  3. HYDROCHLOROZONE [Concomitant]

REACTIONS (1)
  - UNEVALUABLE EVENT [None]
